FAERS Safety Report 5511452-8 (Version None)
Quarter: 2007Q4

REPORT INFORMATION
  Report Type: 
  Country: None (occurrence: None)
  Receive Date: 20071109
  Receipt Date: 20071105
  Transmission Date: 20080405
  Serious: Yes (Other)
  Sender: FDA-Public Use
  Company Number: US-JNJFOC-20071101429

PATIENT
  Sex: Male
  Weight: 12.25 kg

DRUGS (2)
  1. MOTRIN [Suspect]
  2. MOTRIN [Suspect]
     Indication: TEETHING

REACTIONS (2)
  - HALLUCINATION [None]
  - PSYCHOMOTOR HYPERACTIVITY [None]
